FAERS Safety Report 7508726-8 (Version None)
Quarter: 2011Q2

REPORT INFORMATION
  Report Type: 
  Country: None (occurrence: None)
  Receive Date: 20110527
  Receipt Date: 20101004
  Transmission Date: 20111010
  Serious: No
  Sender: FDA-Public Use
  Company Number: A0884779A

PATIENT
  Age: 53 Year
  Sex: Female

DRUGS (1)
  1. VENTOLIN [Suspect]
     Indication: ASTHMA
     Dosage: 1PUFF PER DAY
     Route: 055
     Dates: start: 20100929, end: 20101003

REACTIONS (6)
  - CARDIOVASCULAR DISORDER [None]
  - HYPOAESTHESIA [None]
  - CHEST PAIN [None]
  - PAIN IN EXTREMITY [None]
  - MUSCULOSKELETAL PAIN [None]
  - HEART RATE INCREASED [None]
